FAERS Safety Report 6847675-5 (Version None)
Quarter: 2010Q3

REPORT INFORMATION
  Report Type: 
  Country: None (occurrence: None)
  Receive Date: 20100716
  Receipt Date: 20100705
  Transmission Date: 20110219
  Serious: Yes (Hospitalization)
  Sender: FDA-Public Use
  Company Number: PHHO2010IT07578

PATIENT
  Sex: Male
  Weight: 93 kg

DRUGS (11)
  1. DIOVAN T30230+CAPS [Suspect]
     Indication: HYPERTENSION
     Dosage: 80 MG
     Route: 048
     Dates: start: 20100312, end: 20100506
  2. BENAZEPRIL T25892+TAB [Suspect]
     Indication: HYPERTENSION
     Dosage: 5 MG
     Route: 048
     Dates: start: 20100312
  3. BENAZEPRIL T25892+TAB [Suspect]
     Dosage: 2.5 MG DAILY
     Route: 048
     Dates: start: 20100506
  4. ASPIRIN [Concomitant]
     Indication: THROMBOSIS PROPHYLAXIS
  5. SODIUM BICARBONATE [Concomitant]
     Indication: RENAL FAILURE CHRONIC
  6. LASIX [Concomitant]
  7. XANAX [Concomitant]
     Indication: ANXIETY
  8. ZEMPLAR [Concomitant]
     Indication: HYPERPARATHYROIDISM
  9. ZOLOFT [Concomitant]
     Indication: ANXIETY
  10. ALLOPURINOL [Concomitant]
     Indication: HYPERURICAEMIA
  11. SIMVASTATIN [Concomitant]
     Indication: DYSLIPIDAEMIA

REACTIONS (3)
  - CONCOMITANT DISEASE PROGRESSION [None]
  - DIABETIC NEPHROPATHY [None]
  - RENAL IMPAIRMENT [None]
